FAERS Safety Report 6783798-7 (Version None)
Quarter: 2010Q2

REPORT INFORMATION
  Report Type: 
  Country: None (occurrence: None)
  Receive Date: 20100622
  Receipt Date: 20100611
  Transmission Date: 20101027
  Serious: Yes (Hospitalization)
  Sender: FDA-Public Use
  Company Number: US-JNJFOC-20100502340

PATIENT
  Age: 3 Month
  Sex: Male
  Weight: 3.18 kg

DRUGS (5)
  1. CONCENTRATED TYLENOL INFANT DROPS [Suspect]
     Indication: IMMUNISATION
     Route: 048
  2. CONCENTRATED TYLENOL INFANT DROPS [Suspect]
     Indication: PROCEDURAL PAIN
     Route: 048
  3. ZANTAC [Concomitant]
     Indication: GASTROOESOPHAGEAL REFLUX DISEASE
  4. POLYVITAMINS [Concomitant]
     Indication: WEIGHT INCREASED
  5. BUDESONIDE [Concomitant]
     Indication: DYSPNOEA

REACTIONS (4)
  - CONVULSION [None]
  - PRODUCT QUALITY ISSUE [None]
  - SKIN DISCOLOURATION [None]
  - WEIGHT DECREASED [None]
